FAERS Safety Report 7519852-1 (Version None)
Quarter: 2011Q2

REPORT INFORMATION
  Report Type: 
  Country: None (occurrence: None)
  Receive Date: 20110524
  Receipt Date: 20110509
  Transmission Date: 20111010
  Serious: Yes (Hospitalization)
  Sender: FDA-Public Use
  Company Number: 11-036

PATIENT
  Age: 45 Year
  Sex: Female

DRUGS (10)
  1. LEVETIRACETAM [Suspect]
     Indication: PARTIAL SEIZURES
     Dosage: 500 MG, BID
  2. INSULIN [Concomitant]
  3. FEXPFEMADOME [Concomitant]
  4. ATENOLOL [Concomitant]
  5. PROPOXYPHENE HCL AND ACETAMINOPHEN [Concomitant]
  6. METHIMAZOLE [Concomitant]
  7. ALENDRONATE SODIUM [Concomitant]
  8. PANTOPRAZOLE [Concomitant]
  9. IPRATROPIUM-ABLUTEROL [Concomitant]
  10. OXYGEN [Concomitant]

REACTIONS (3)
  - ACUTE GENERALISED EXANTHEMATOUS PUSTULOSIS [None]
  - RESPIRATORY FAILURE [None]
  - SEPTIC SHOCK [None]
